FAERS Safety Report 17821143 (Version 1)
Quarter: 2020Q2

REPORT INFORMATION
  Report Type: Spontaneous
  Country: US (occurrence: US)
  Receive Date: 20200525
  Receipt Date: 20200525
  Transmission Date: 20200714
  Serious: No
  Sender: FDA-Public Use
  Company Number: US-ASTRAZENECA-2020SE65766

PATIENT
  Sex: Female

DRUGS (1)
  1. SYMBICORT [Suspect]
     Active Substance: BUDESONIDE\FORMOTEROL FUMARATE DIHYDRATE
     Dosage: SYMBICORT 160/4.5MCG 2 PUFFS TWICE A DAY
     Route: 055

REACTIONS (4)
  - Cataract [Unknown]
  - Product use issue [Unknown]
  - Wrong technique in product usage process [Unknown]
  - Device issue [Unknown]
